FAERS Safety Report 16866545 (Version 1)
Quarter: 2019Q3

REPORT INFORMATION
  Report Type: Spontaneous
  Country: US (occurrence: US)
  Receive Date: 20190806
  Receipt Date: 20190806
  Transmission Date: 20191005
  Serious: No
  Sender: FDA-Public Use
  Company Number: None

PATIENT
  Age: 62 Year
  Sex: Female

DRUGS (4)
  1. IBRANCE [Suspect]
     Active Substance: PALBOCICLIB
     Indication: BREAST CANCER
     Dates: start: 20190730
  2. TRADJENTA [Concomitant]
     Active Substance: LINAGLIPTIN
  3. LISINOPRIL. [Concomitant]
     Active Substance: LISINOPRIL
  4. HYDROXYCHOROQUINE [Concomitant]

REACTIONS (2)
  - Headache [None]
  - Arthralgia [None]

NARRATIVE: CASE EVENT DATE: 20190806
